FAERS Safety Report 19643085 (Version 1)
Quarter: 2021Q3

REPORT INFORMATION
  Report Type: Spontaneous
  Country: GR (occurrence: GR)
  Receive Date: 20210730
  Receipt Date: 20210730
  Transmission Date: 20211014
  Serious: Yes (Other)
  Sender: FDA-Public Use
  Company Number: GR-JNJFOC-20210744983

PATIENT
  Age: 23 Year
  Sex: Male

DRUGS (1)
  1. RISPERDAL [Suspect]
     Active Substance: RISPERIDONE
     Indication: PSYCHOMOTOR HYPERACTIVITY
     Route: 065

REACTIONS (7)
  - Extrapyramidal disorder [Unknown]
  - Leukoencephalopathy [Unknown]
  - Peripheral sensorimotor neuropathy [Unknown]
  - Chorea [Unknown]
  - Quadriparesis [Unknown]
  - Deafness neurosensory [Unknown]
  - Intellectual disability [Unknown]
